FAERS Safety Report 16020395 (Version 1)
Quarter: 2019Q1

REPORT INFORMATION
  Report Type: Spontaneous
  Country: FR (occurrence: FR)
  Receive Date: 20190301
  Receipt Date: 20190301
  Transmission Date: 20190418
  Serious: Yes (Death, Other)
  Sender: FDA-Public Use
  Company Number: FR-MYLANLABS-2019M1018890

PATIENT
  Age: 68 Year
  Sex: Female

DRUGS (7)
  1. MITOMYCIN. [Suspect]
     Active Substance: MITOMYCIN
     Indication: BREAST CANCER
     Dosage: UNK
  2. VINDESINE [Suspect]
     Active Substance: VINDESINE
     Indication: BREAST CANCER
     Dosage: UNK
  3. DOXORUBICIN [Suspect]
     Active Substance: DOXORUBICIN
     Indication: BREAST CANCER
     Dosage: UNK
  4. VINCRISTINE SULFATE. [Suspect]
     Active Substance: VINCRISTINE SULFATE
     Indication: BREAST CANCER
     Dosage: UNK
  5. FLUOROURACIL. [Suspect]
     Active Substance: FLUOROURACIL
     Indication: BREAST CANCER
     Dosage: UNK
  6. ETOPOSIDE. [Suspect]
     Active Substance: ETOPOSIDE
     Indication: BREAST CANCER
     Dosage: UNK
  7. CYCLOPHOSPHAMIDE. [Suspect]
     Active Substance: CYCLOPHOSPHAMIDE
     Indication: BREAST CANCER
     Dosage: UNK

REACTIONS (1)
  - Acute promyelocytic leukaemia [Fatal]
